FAERS Safety Report 7124805-1 (Version None)
Quarter: 2010Q4

REPORT INFORMATION
  Report Type: 
  Country: None (occurrence: None)
  Receive Date: 20101123
  Receipt Date: 20101123
  Transmission Date: 20110411
  Serious: Yes (Life-Threatening, Hospitalization)
  Sender: FDA-Public Use
  Company Number: None

PATIENT
  Age: 56 Year
  Sex: Female

DRUGS (8)
  1. WARFARIN SODIUM [Suspect]
     Indication: CEREBROVASCULAR ACCIDENT
     Dosage: 6 MG DAILY PO
     Route: 048
     Dates: start: 20100412, end: 20100704
  2. ASPIRIN [Suspect]
     Indication: CEREBROVASCULAR ACCIDENT
     Dosage: 81 MG DAILY PO
     Route: 048
     Dates: start: 20100401, end: 20100704
  3. AMLODIPINE [Concomitant]
  4. ATORVASTATIN [Concomitant]
  5. FERROUS SULFATE [Concomitant]
  6. METFORMIN HCL [Concomitant]
  7. SITAGLIPTIN [Concomitant]
  8. ZOLPIDEM [Concomitant]

REACTIONS (7)
  - DYSARTHRIA [None]
  - GASTROINTESTINAL HAEMORRHAGE [None]
  - HAEMATOCRIT DECREASED [None]
  - HAEMOGLOBIN DECREASED [None]
  - INTERNATIONAL NORMALISED RATIO INCREASED [None]
  - OCCULT BLOOD POSITIVE [None]
  - VISION BLURRED [None]
